FAERS Safety Report 5422412-X (Version None)
Quarter: 2007Q3

REPORT INFORMATION
  Report Type: 
  Country: None (occurrence: None)
  Receive Date: 20070822
  Receipt Date: 20070807
  Transmission Date: 20080115
  Serious: Yes (Other)
  Sender: FDA-Public Use
  Company Number: B0478918A

PATIENT
  Age: 79 Year
  Sex: Male
  Weight: 86 kg

DRUGS (3)
  1. AVODART [Suspect]
     Route: 065
  2. CIPROFLOXACIN [Concomitant]
     Dosage: 1000MG PER DAY
     Dates: start: 20060316
  3. MONURIL [Concomitant]
     Dates: start: 20060324

REACTIONS (3)
  - GAMMA-GLUTAMYLTRANSFERASE INCREASED [None]
  - HEPATIC ENZYME INCREASED [None]
  - TRANSAMINASES INCREASED [None]
